FAERS Safety Report 17872829 (Version 1)
Quarter: 2020Q2

REPORT INFORMATION
  Report Type: Spontaneous
  Country: US (occurrence: US)
  Receive Date: 20200608
  Receipt Date: 20200608
  Transmission Date: 20200714
  Serious: Yes (Other)
  Sender: FDA-Public Use
  Company Number: US-PURDUE PHARMA-USA-2020-0153500

PATIENT

DRUGS (1)
  1. OXYCONTIN [Suspect]
     Active Substance: OXYCODONE HYDROCHLORIDE
     Indication: PAIN
     Dosage: UNKNOWN
     Route: 048

REACTIONS (8)
  - Detoxification [Unknown]
  - Cardiovascular disorder [Unknown]
  - Drug dependence [Unknown]
  - Respiratory disorder [Unknown]
  - Malaise [Unknown]
  - Gastrointestinal disorder [Unknown]
  - Obesity [Unknown]
  - Hepatic cancer [Unknown]

NARRATIVE: CASE EVENT DATE: 200901
